FAERS Safety Report 9790183 (Version 2)
Quarter: 2013Q4

REPORT INFORMATION
  Report Type: Spontaneous
  Country: US (occurrence: US)
  Receive Date: 20131231
  Receipt Date: 20131231
  Transmission Date: 20140711
  Serious: Yes (Other)
  Sender: FDA-Public Use
  Company Number: US-GE HEALTHCARE MEDICAL DIAGNOSTICS-OSCN-PR-0808S-0493

PATIENT
  Age: 36 Year
  Sex: Male

DRUGS (3)
  1. OMNISCAN [Suspect]
     Indication: PRODUCT USED FOR UNKNOWN INDICATION
     Route: 042
     Dates: start: 20040407, end: 20040407
  2. OMNISCAN [Suspect]
     Route: 042
     Dates: start: 20040414, end: 20040414
  3. OPTIMARK [Suspect]
     Indication: PRODUCT USED FOR UNKNOWN INDICATION
     Dates: start: 20060414, end: 20060414

REACTIONS (1)
  - Nephrogenic systemic fibrosis [Not Recovered/Not Resolved]
